FAERS Safety Report 9814381 (Version 2)
Quarter: 2014Q1

REPORT INFORMATION
  Report Type: Report from Study
  Country: NZ (occurrence: NZ)
  Receive Date: 20140113
  Receipt Date: 20140113
  Transmission Date: 20141002
  Serious: Yes (Other)
  Sender: FDA-Public Use
  Company Number: PHHY2013NZ134066

PATIENT
  Age: 49 Year
  Sex: Male

DRUGS (5)
  1. CLOZARIL [Suspect]
     Indication: SCHIZOPHRENIA
     Dosage: 750 MG, QD
     Route: 048
  2. CLOZARIL [Suspect]
     Dosage: 400 MG, QD
     Route: 048
  3. SODIUM VALPROATE [Concomitant]
     Indication: CONVULSION
     Dosage: 2000 MG, QD
     Route: 048
  4. SODIUM VALPROATE [Concomitant]
     Indication: MYOCLONUS
  5. FLUOXETIN [Concomitant]
     Indication: DEPRESSION
     Dosage: 60 MG, QD
     Route: 048

REACTIONS (3)
  - Electric shock [Recovering/Resolving]
  - Antipsychotic drug level increased [Recovered/Resolved]
  - Paraesthesia [Recovering/Resolving]
